FAERS Safety Report 7304804-7 (Version None)
Quarter: 2011Q1

REPORT INFORMATION
  Report Type: 
  Country: None (occurrence: None)
  Receive Date: 20110222
  Receipt Date: 20110210
  Transmission Date: 20110831
  Serious: No
  Sender: FDA-Public Use
  Company Number: US-PFIZER INC-US-WYE-H16043110

PATIENT
  Sex: Female
  Weight: 47.2 kg

DRUGS (5)
  1. PRISTIQ [Suspect]
     Dosage: 50 MG, 1X/DAY
     Route: 048
     Dates: start: 20100709, end: 20100722
  2. PRISTIQ [Suspect]
     Indication: DEPRESSION
     Dosage: 50 MG, 1X/DAY
     Route: 048
     Dates: start: 20091101, end: 20100703
  3. SEROQUEL [Concomitant]
  4. ACTIVELLA [Concomitant]
  5. PRISTIQ [Suspect]
     Dosage: 100 MG, 1X/DAY
     Route: 048
     Dates: start: 20100704, end: 20100708

REACTIONS (7)
  - BIPOLAR II DISORDER [None]
  - ANXIETY [None]
  - AKATHISIA [None]
  - DRUG EFFECT DECREASED [None]
  - STRESS [None]
  - RESTLESSNESS [None]
  - DRUG WITHDRAWAL SYNDROME [None]
